FAERS Safety Report 7059568-1 (Version None)
Quarter: 2010Q4

REPORT INFORMATION
  Report Type: 
  Country: None (occurrence: None)
  Receive Date: 20101025
  Receipt Date: 20101012
  Transmission Date: 20110411
  Serious: Yes (Hospitalization, Other)
  Sender: FDA-Public Use
  Company Number: PHFR2010GB02163

PATIENT
  Sex: Female

DRUGS (3)
  1. CLOZARIL [Suspect]
     Indication: SCHIZOPHRENIA
     Dosage: UNK
     Route: 048
     Dates: start: 19980326, end: 20100922
  2. ZUCLOPENTHIXOL [Concomitant]
     Dosage: 10 MG, BID
  3. ZUCLOPENTHIXOL [Concomitant]
     Dosage: 20 MG, BID
     Dates: start: 20100929

REACTIONS (11)
  - ASTHENIA [None]
  - BREAST CANCER [None]
  - DIZZINESS [None]
  - MALAISE [None]
  - MENTAL DISORDER [None]
  - METASTASES TO NECK [None]
  - METASTASIS [None]
  - NEUTROPHIL COUNT DECREASED [None]
  - SCHIZOPHRENIA [None]
  - SUICIDAL IDEATION [None]
  - WHITE BLOOD CELL COUNT DECREASED [None]
